FAERS Safety Report 4505691-2 (Version None)
Quarter: 2004Q4

REPORT INFORMATION
  Report Type: 
  Country: None (occurrence: None)
  Receive Date: 20041018
  Receipt Date: 20040907
  Transmission Date: 20050328
  Serious: No
  Sender: FDA-Public Use
  Company Number: 208633

PATIENT
  Age: 12 Year
  Sex: Male
  Weight: 155.6 kg

DRUGS (3)
  1. XOLAIR [Suspect]
     Indication: ASTHMA
     Dosage: 375 MG, Q2W, SUBCUTANEOUS
     Route: 058
     Dates: start: 20031201
  2. ZYRTEC [Concomitant]
  3. SINGULAIR [Concomitant]

REACTIONS (1)
  - FLUID RETENTION [None]
